FAERS Safety Report 9158467 (Version 1)
Quarter: 2013Q1

REPORT INFORMATION
  Report Type: Report from Study
  Country: DE (occurrence: DE)
  Receive Date: 20130312
  Receipt Date: 20130312
  Transmission Date: 20140127
  Serious: Yes (Hospitalization)
  Sender: FDA-Public Use
  Company Number: DE-TEVA-389569ISR

PATIENT
  Age: 63 Year
  Sex: Female
  Weight: 84 kg

DRUGS (3)
  1. PACLITAXEL [Suspect]
     Indication: OVARIAN CANCER
     Dosage: 175 MG/M2 DAILY; DATE OF LAST DOSE PRIOR TO SAE: 29-JAN-2013 (175 MG/M2,1 IN 21 D)
     Route: 042
     Dates: start: 20130108
  2. CARBOPLATIN [Suspect]
     Indication: OVARIAN CANCER
     Dosage: 5 AUC (1 IN 21 D),
     Route: 042
     Dates: start: 20130108
  3. BEVACIZUMAB [Suspect]
     Indication: OVARIAN CANCER
     Dosage: 15 MG/KG DAILY; DATE OF LAST DOSE PRIOR TO SAE: 29-JAN-2013 (15 MG/KG,1 IN 21 D)
     Route: 042
     Dates: start: 20130108

REACTIONS (1)
  - Back pain [Recovered/Resolved]
